FAERS Safety Report 9126391 (Version 2)
Quarter: 2013Q1

REPORT INFORMATION
  Report Type: Spontaneous
  Country: FR (occurrence: FR)
  Receive Date: 20130117
  Receipt Date: 20130313
  Transmission Date: 20140127
  Serious: Yes (Death)
  Sender: FDA-Public Use
  Company Number: FR-GLAXOSMITHKLINE-B0857068A

PATIENT
  Age: 22 None
  Sex: Male

DRUGS (9)
  1. AUGMENTIN [Suspect]
     Indication: BRONCHITIS
     Dosage: 3G PER DAY
     Route: 042
     Dates: start: 20121212, end: 20121217
  2. ZOPHREN [Suspect]
     Indication: PRODUCT USED FOR UNKNOWN INDICATION
     Dosage: 4MG PER DAY
     Route: 042
     Dates: start: 20121213, end: 20121214
  3. DEBRIDAT [Suspect]
     Indication: ILL-DEFINED DISORDER
     Dosage: 50MG TWICE PER DAY
     Route: 042
     Dates: start: 20121213, end: 20121217
  4. ESOMEPRAZOLE [Suspect]
     Indication: ILL-DEFINED DISORDER
     Dosage: 40MG PER DAY
     Route: 042
     Dates: start: 20121213, end: 20121216
  5. PARACETAMOL [Suspect]
     Indication: PRODUCT USED FOR UNKNOWN INDICATION
     Dosage: 300MG PER DAY
     Route: 042
  6. PROFENID [Suspect]
     Indication: PRODUCT USED FOR UNKNOWN INDICATION
     Dosage: 100MG SINGLE DOSE
     Route: 030
     Dates: start: 20121214, end: 20121214
  7. POTASSIUM SUPPLEMENT [Concomitant]
     Route: 065
  8. VOGALENE [Concomitant]
     Dosage: 10MG TWICE PER DAY
     Route: 042
  9. SODIUM [Concomitant]
     Route: 042

REACTIONS (16)
  - Renal failure acute [Fatal]
  - Hepatitis [Recovering/Resolving]
  - Hyperammonaemia [Fatal]
  - Anuria [Not Recovered/Not Resolved]
  - Acute pulmonary oedema [Fatal]
  - Hepatocellular injury [Not Recovered/Not Resolved]
  - Hypoxia [Unknown]
  - General physical health deterioration [Unknown]
  - Face oedema [Unknown]
  - Hyperkalaemia [Recovered/Resolved]
  - Somnolence [Unknown]
  - Oedema [Unknown]
  - Ventricular tachycardia [Unknown]
  - Respiratory distress [Unknown]
  - Hypercapnia [Unknown]
  - Acidosis [Unknown]
